FAERS Safety Report 9799155 (Version 1)
Quarter: 2014Q1

REPORT INFORMATION
  Report Type: Spontaneous
  Country: US (occurrence: None)
  Receive Date: 20140103
  Receipt Date: 20140103
  Transmission Date: 20141002
  Serious: Yes (Disabling)
  Sender: FDA-Public Use
  Company Number: None

PATIENT
  Age: 47 None
  Sex: Female
  Weight: 54.43 kg

DRUGS (9)
  1. CIPROFLAXACIN [Suspect]
     Indication: INFECTION
     Dosage: 1 TABLET
     Route: 048
     Dates: start: 201306, end: 20130923
  2. SYNTHROID [Concomitant]
  3. RATIDINE [Concomitant]
  4. IRON TAB [Concomitant]
  5. CREON [Concomitant]
  6. MULTI/MINERAL [Concomitant]
  7. MAGNESIUM [Concomitant]
  8. VITAMIN C [Concomitant]
  9. CALCIUM CHEWS [Concomitant]

REACTIONS (2)
  - Arthralgia [None]
  - Movement disorder [None]
